FAERS Safety Report 6691908-5 (Version None)
Quarter: 2010Q2

REPORT INFORMATION
  Report Type: 
  Country: None (occurrence: None)
  Receive Date: 20100422
  Receipt Date: 20090609
  Transmission Date: 20101027
  Serious: No
  Sender: FDA-Public Use
  Company Number: US-ASTRAZENECA-2005UW17218

PATIENT
  Age: 80 Year
  Sex: Female

DRUGS (11)
  1. TOPROL-XL [Suspect]
     Indication: HYPERTENSION
     Route: 048
     Dates: start: 20040401
  2. TOPROL-XL [Suspect]
     Route: 048
     Dates: start: 20060101
  3. TOPROL-XL [Suspect]
     Route: 048
     Dates: start: 20090501
  4. AVANDIA [Suspect]
     Dates: start: 20040501
  5. DIOVAN HCT [Concomitant]
  6. SYNTHROID [Concomitant]
  7. ALLEGRA [Concomitant]
  8. PLAVIX [Concomitant]
  9. TRICOR [Concomitant]
  10. ZETIA [Concomitant]
  11. LOVAZA [Concomitant]

REACTIONS (3)
  - BLOOD PRESSURE INCREASED [None]
  - DYSPNOEA [None]
  - WEIGHT INCREASED [None]
